FAERS Safety Report 6926107-2 (Version None)
Quarter: 2010Q3

REPORT INFORMATION
  Report Type: 
  Country: None (occurrence: None)
  Receive Date: 20100816
  Receipt Date: 20100803
  Transmission Date: 20110219
  Serious: Yes (Congenital Anomaly)
  Sender: FDA-Public Use
  Company Number: DE-BAYER-201035403GPV

PATIENT
  Sex: Female
  Weight: 3.38 kg

DRUGS (1)
  1. QLAIRA [Suspect]
     Route: 064
     Dates: start: 20090610

REACTIONS (2)
  - EAR MALFORMATION [None]
  - EXTERNAL EAR DISORDER [None]
